FAERS Safety Report 5755913-5 (Version None)
Quarter: 2008Q2

REPORT INFORMATION
  Report Type: 
  Country: None (occurrence: None)
  Receive Date: 20080602
  Receipt Date: 20080521
  Transmission Date: 20081010
  Serious: Yes (Hospitalization, Other)
  Sender: FDA-Public Use
  Company Number: NO-ELI_LILLY_AND_COMPANY-NO200709002419

PATIENT
  Age: 13 Year
  Sex: Male

DRUGS (1)
  1. STRATTERA [Suspect]
     Indication: ATTENTION DEFICIT/HYPERACTIVITY DISORDER
     Dosage: 18 MG, 2/D
     Route: 048
     Dates: start: 20051101, end: 20060423

REACTIONS (3)
  - BLOOD CALCIUM INCREASED [None]
  - HEPATIC FAILURE [None]
  - VITAMIN B12 INCREASED [None]
